FAERS Safety Report 5936032-1 (Version None)
Quarter: 2008Q4

REPORT INFORMATION
  Report Type: 
  Country: None (occurrence: None)
  Receive Date: 20081028
  Receipt Date: 20081020
  Transmission Date: 20090506
  Serious: Yes (Other)
  Sender: FDA-Public Use
  Company Number: 2008SP021443

PATIENT
  Age: 74 Year
  Sex: Male

DRUGS (2)
  1. PEG-INTRON [Suspect]
     Indication: HEPATITIS C
     Dosage: SC
     Route: 058
     Dates: start: 20080828, end: 20081002
  2. REBETOL [Suspect]
     Indication: HEPATITIS C
     Dosage: PO
     Route: 048
     Dates: start: 20080828, end: 20081002

REACTIONS (8)
  - ANOREXIA [None]
  - ASCITES [None]
  - HYPOALBUMINAEMIA [None]
  - INSOMNIA [None]
  - NEPHROTIC SYNDROME [None]
  - PROTEINURIA [None]
  - SWELLING [None]
  - WEIGHT INCREASED [None]
